FAERS Safety Report 16637392 (Version 1)
Quarter: 2019Q3

REPORT INFORMATION
  Report Type: Spontaneous
  Country: US (occurrence: US)
  Receive Date: 20190726
  Receipt Date: 20190726
  Transmission Date: 20191004
  Serious: No
  Sender: FDA-Public Use
  Company Number: US-PERRIGO-18US006987

PATIENT
  Age: 72 Year
  Sex: Male
  Weight: 58.05 kg

DRUGS (1)
  1. MINOXIDIL. [Suspect]
     Active Substance: MINOXIDIL
     Indication: ALOPECIA
     Dosage: UNKNOWN, 1 TO 2 TIMES DAILY, PRN
     Route: 061
     Dates: start: 201806

REACTIONS (4)
  - Hair texture abnormal [Unknown]
  - Headache [Unknown]
  - Inappropriate schedule of product administration [Unknown]
  - Alopecia [Unknown]

NARRATIVE: CASE EVENT DATE: 201806
